FAERS Safety Report 6388411-9 (Version None)
Quarter: 2009Q4

REPORT INFORMATION
  Report Type: 
  Country: None (occurrence: None)
  Receive Date: 20091005
  Receipt Date: 20090924
  Transmission Date: 20100525
  Serious: Yes (Other)
  Sender: FDA-Public Use
  Company Number: CA-JNJFOC-20090907527

PATIENT
  Sex: Female

DRUGS (4)
  1. REMICADE [Suspect]
     Indication: DRUG USE FOR UNKNOWN INDICATION
     Route: 042
  2. IMURAN [Concomitant]
  3. ORAL CONTRACEPTIVE [Concomitant]
     Route: 048
  4. CELEBREX [Concomitant]
     Route: 048

REACTIONS (1)
  - LUPUS-LIKE SYNDROME [None]
